FAERS Safety Report 12571375 (Version 1)
Quarter: 2016Q3

REPORT INFORMATION
  Report Type: Spontaneous
  Country: NL (occurrence: DE)
  Receive Date: 20160719
  Receipt Date: 20160719
  Transmission Date: 20161109
  Serious: Yes (Hospitalization)
  Sender: FDA-Public Use
  Company Number: NL-MYLANLABS-2016M1028933

PATIENT

DRUGS (3)
  1. OMEPRAZOL MYLAN 20MG GASTRO-RESISTANT CAPSULE, HARD [Suspect]
     Active Substance: OMEPRAZOLE
     Indication: PRODUCT USED FOR UNKNOWN INDICATION
     Dosage: UNK (FOR MORE THAN 20 YEARS)
     Dates: start: 1995
  2. OMEPRAZOL MYLAN 20MG GASTRO-RESISTANT CAPSULE, HARD [Suspect]
     Active Substance: OMEPRAZOLE
     Dosage: UNK (WHITE INSTEAD OF WHITE -ROSE CAPSULES)
     Dates: start: 201605
  3. INSULIN NOVO [Concomitant]
     Active Substance: INSULIN HUMAN
     Indication: DIABETES MELLITUS
     Dosage: UNK (8-10 TIMES PER DAY

REACTIONS (4)
  - Nasopharyngitis [Recovered/Resolved]
  - Product colour issue [None]
  - Bacterial infection [Recovered/Resolved]
  - Product quality issue [None]

NARRATIVE: CASE EVENT DATE: 20160511
